FAERS Safety Report 4436246-6 (Version None)
Quarter: 2004Q3

REPORT INFORMATION
  Report Type: 
  Country: None (occurrence: None)
  Receive Date: 20040830
  Receipt Date: 20040610
  Transmission Date: 20050211
  Serious: Yes (Other)
  Sender: FDA-Public Use
  Company Number: US-BRISTOL-MYERS SQUIBB COMPANY-12610903

PATIENT
  Sex: Male

DRUGS (6)
  1. ERBITUX [Suspect]
     Indication: COLON CANCER METASTATIC
     Route: 042
     Dates: start: 20040316, end: 20040316
  2. ANZEMET [Concomitant]
     Indication: PREMEDICATION
     Route: 042
     Dates: start: 20040316, end: 20040316
  3. BENADRYL [Concomitant]
     Indication: PREMEDICATION
     Route: 042
     Dates: start: 20040316, end: 20040316
  4. DECADRON [Concomitant]
     Indication: PREMEDICATION
     Route: 042
     Dates: start: 20040316, end: 20040316
  5. CAMPTOSAR [Concomitant]
     Indication: COLON CANCER METASTATIC
     Route: 042
     Dates: start: 20040316, end: 20040316
  6. EYE DROPS [Concomitant]
     Route: 047

REACTIONS (2)
  - DERMATITIS ACNEIFORM [None]
  - INTERSTITIAL LUNG DISEASE [None]
